FAERS Safety Report 5624075-7 (Version None)
Quarter: 2008Q1

REPORT INFORMATION
  Report Type: 
  Country: None (occurrence: None)
  Receive Date: 20080213
  Receipt Date: 20070927
  Transmission Date: 20080703
  Serious: No
  Sender: FDA-Public Use
  Company Number: US-KINGPHARMUSA00001-K200701255

PATIENT

DRUGS (1)
  1. EPIPEN [Suspect]
     Dosage: UNK, SINGLE
     Dates: start: 20070926, end: 20070926

REACTIONS (2)
  - ACCIDENTAL EXPOSURE [None]
  - INJECTION SITE PAIN [None]
